FAERS Safety Report 18018285 (Version 1)
Quarter: 2020Q3

REPORT INFORMATION
  Report Type: Spontaneous
  Country: US (occurrence: US)
  Receive Date: 20200713
  Receipt Date: 20200713
  Transmission Date: 20201103
  Serious: Yes (Other)
  Sender: FDA-Public Use
  Company Number: None

PATIENT
  Age: 63 Year
  Sex: Male
  Weight: 97.07 kg

DRUGS (4)
  1. HYDROCODONE W/APAP 10MG/325MG [Suspect]
     Active Substance: ACETAMINOPHEN\HYDROCODONE
     Indication: BACK PAIN
     Dosage: ?          QUANTITY:14 DF DOSAGE FORM;OTHER FREQUENCY:1 EVERY 6 HRS?CIP;?
     Dates: start: 20200701, end: 20200712
  2. METFORMIN [Concomitant]
     Active Substance: METFORMIN HYDROCHLORIDE
  3. IBUPROFEN. [Concomitant]
     Active Substance: IBUPROFEN
  4. CENTRUM VITAMIN QD [Concomitant]

REACTIONS (6)
  - Insomnia [None]
  - Tinnitus [None]
  - Headache [None]
  - Pain [None]
  - Nausea [None]
  - Product quality issue [None]

NARRATIVE: CASE EVENT DATE: 20200702
